FAERS Safety Report 8882124 (Version 1)
Quarter: 2012Q4

REPORT INFORMATION
  Report Type: 
  Country: US (occurrence: US)
  Receive Date: 20121102
  Receipt Date: 20121102
  Transmission Date: 20130627
  Serious: No
  Sender: FDA-Public Use
  Company Number: US-009507513-1210USA014075

PATIENT
  Sex: Female

DRUGS (5)
  1. FOSAMAX [Suspect]
     Indication: OSTEOPOROSIS
     Dosage: UNK
     Route: 048
     Dates: start: 1998, end: 2004
  2. GABAPENTIN [Concomitant]
  3. VITAMINS (UNSPECIFIED) [Concomitant]
  4. MINERALS (UNSPECIFIED) [Concomitant]
  5. OMEGA-3 MARINE TRIGLYCERIDES [Concomitant]

REACTIONS (5)
  - Groin pain [Not Recovered/Not Resolved]
  - Pain in extremity [Not Recovered/Not Resolved]
  - Arthralgia [Not Recovered/Not Resolved]
  - Musculoskeletal discomfort [Not Recovered/Not Resolved]
  - Pneumonia [Not Recovered/Not Resolved]
